FAERS Safety Report 9813086 (Version 2)
Quarter: 2014Q1

REPORT INFORMATION
  Report Type: Report from Study
  Country: US (occurrence: US)
  Receive Date: 20140113
  Receipt Date: 20140113
  Transmission Date: 20141002
  Serious: Yes (Other)
  Sender: FDA-Public Use
  Company Number: US-PURDUE-USA-2013-0109388

PATIENT
  Age: 64 Year
  Sex: Female
  Weight: 79.82 kg

DRUGS (2)
  1. BTDS PATCH [Suspect]
     Indication: PAIN
     Dosage: 20 MCG/HR, WEEKLY
     Route: 062
     Dates: start: 20131104
  2. BTDS PATCH [Suspect]
     Indication: RHEUMATOID ARTHRITIS
     Dosage: 20 MCG/HR, WEEKLY
     Route: 062
     Dates: start: 20130524

REACTIONS (4)
  - Laceration [Recovered/Resolved]
  - Fall [Recovered/Resolved]
  - Head injury [Unknown]
  - Intentional drug misuse [Unknown]
